FAERS Safety Report 8123134-7 (Version None)
Quarter: 2012Q1

REPORT INFORMATION
  Report Type: 
  Country: None (occurrence: None)
  Receive Date: 20120208
  Receipt Date: 20120131
  Transmission Date: 20120608
  Serious: Yes (Other)
  Sender: FDA-Public Use
  Company Number: US-MYLANLABS-2012S1002342

PATIENT
  Sex: Male
  Weight: 80.74 kg

DRUGS (1)
  1. PHENYTOIN SODIUM CAP [Suspect]
     Indication: BRAIN INJURY
     Route: 048

REACTIONS (1)
  - GRAND MAL CONVULSION [None]
